FAERS Safety Report 7495909-9 (Version None)
Quarter: 2011Q2

REPORT INFORMATION
  Report Type: 
  Country: None (occurrence: None)
  Receive Date: 20110523
  Receipt Date: 20110512
  Transmission Date: 20111010
  Serious: No
  Sender: FDA-Public Use
  Company Number: US-ROXANE LABORATORIES, INC.-2011-RO-00650RO

PATIENT
  Sex: Female

DRUGS (5)
  1. AFRIN [Concomitant]
     Dates: start: 20110430, end: 20110430
  2. ESTRACE [Concomitant]
  3. FLUTICASONE PROPIONATE [Suspect]
     Indication: RHINITIS ALLERGIC
     Route: 045
     Dates: start: 20110301, end: 20110505
  4. SYNTHROID [Concomitant]
     Indication: HYPOTHYROIDISM
  5. ACIPHEX [Concomitant]

REACTIONS (2)
  - DRY EYE [None]
  - NASOPHARYNGITIS [None]
